FAERS Safety Report 5126962-5 (Version None)
Quarter: 2006Q4

REPORT INFORMATION
  Report Type: 
  Country: None (occurrence: None)
  Receive Date: 20061013
  Receipt Date: 20060915
  Transmission Date: 20070319
  Serious: Yes (Hospitalization)
  Sender: FDA-Public Use
  Company Number: DE-MERCK-0609DEU00064

PATIENT
  Age: 48 Year
  Sex: Male

DRUGS (5)
  1. ZETIA [Suspect]
     Route: 048
     Dates: start: 20060824, end: 20060907
  2. ENALAPRIL MALEATE [Concomitant]
     Indication: HYPERTENSION
     Route: 048
  3. ALLOPURINOL SODIUM [Concomitant]
     Indication: BLOOD URIC ACID INCREASED
     Route: 048
  4. BEZAFIBRATE [Concomitant]
     Indication: HYPERTRIGLYCERIDAEMIA
     Route: 048
     Dates: start: 20060601
  5. BISOPROLOL FUMARATE [Concomitant]
     Route: 048

REACTIONS (2)
  - HEPATITIS [None]
  - METABOLIC SYNDROME [None]
